FAERS Safety Report 8653693 (Version 3)
Quarter: 2013Q1

REPORT INFORMATION
  Report Type: Report from Study
  Country: JP (occurrence: JP)
  Receive Date: 20120709
  Receipt Date: 20130104
  Transmission Date: 20140127
  Serious: Yes (Other)
  Sender: FDA-Public Use
  Company Number: JP-VERTEX PHARMACEUTICALS INC.-AE-2012-009730

PATIENT
  Age: 59 Year
  Sex: Male

DRUGS (8)
  1. VX-950 (TELAPREVIR) [Suspect]
     Indication: HEPATITIS C
     Dosage: 2250 MG, QD
     Dates: start: 20120502, end: 20120509
  2. VX-950 (TELAPREVIR) [Suspect]
     Dosage: 1500 MG, QD
     Dates: start: 20120516, end: 20120519
  3. RIBAVIRIN [Suspect]
     Indication: HEPATITIS C
     Dosage: 800 MG, QD
     Route: 048
     Dates: start: 20120502, end: 20120509
  4. RIBAVIRIN [Suspect]
     Dosage: 800 MG, QD
     Route: 048
     Dates: start: 20120516, end: 20120523
  5. PEGINTERFERON ALFA-2B [Suspect]
     Indication: HEPATITIS C
     Dosage: 1.5 ?G/KG, QW
     Route: 058
     Dates: start: 20120502, end: 20120523
  6. TALION [Concomitant]
     Dosage: 10 MG, QD
     Route: 048
     Dates: start: 20120502, end: 20120523
  7. ALFAROL [Concomitant]
     Dosage: 1 MG, QD
     Route: 048
     Dates: start: 20120502, end: 20120523
  8. URSO [Concomitant]
     Dosage: 600 MG, QD
     Route: 048

REACTIONS (2)
  - Renal impairment [Recovered/Resolved]
  - Hyperuricaemia [Recovered/Resolved]
